FAERS Safety Report 25759345 (Version 3)
Quarter: 2025Q4

REPORT INFORMATION
  Report Type: Spontaneous
  Country: CA (occurrence: CA)
  Receive Date: 20250904
  Receipt Date: 20251209
  Transmission Date: 20260119
  Serious: Yes (Death, Life-Threatening, Hospitalization, Disabling, Congenital Anomaly, Other)
  Sender: Haleon PLC
  Company Number: CA-SANDOZ-SDZ2025CA060834

PATIENT

DRUGS (218)
  1. CALTRATE [Suspect]
     Active Substance: CALCIUM CARBONATE
     Indication: Foetal exposure during pregnancy
     Dosage: MATERNAL EXPOSURE DURING PREGNANCY:UNK
     Route: 064
  2. ADVIL [Suspect]
     Active Substance: IBUPROFEN
     Indication: Product used for unknown indication
  3. PANTOPRAZOLE [Suspect]
     Active Substance: PANTOPRAZOLE
     Indication: Foetal exposure during pregnancy
     Dosage: MATERNAL EXPOSURE DURING PREGNANCY:UNK
  4. PANTOPRAZOLE [Suspect]
     Active Substance: PANTOPRAZOLE
     Dosage: MATERNAL EXPOSURE DURING PREGNANCY:UNK (OTHER)
  5. PANTOPRAZOLE [Suspect]
     Active Substance: PANTOPRAZOLE
     Dosage: MATERNAL EXPOSURE DURING PREGNANCY:UNK (OTHER)
  6. PANTOPRAZOLE [Suspect]
     Active Substance: PANTOPRAZOLE
     Dosage: MATERNAL EXPOSURE DURING PREGNANCY:2000 MG
     Route: 064
  7. MYCOPHENOLATE MOFETIL [Suspect]
     Active Substance: MYCOPHENOLATE MOFETIL
     Indication: Foetal exposure during pregnancy
     Dosage: MATERNAL EXPOSURE DURING PREGNANCY:20 MG
     Route: 064
  8. HUMIRA [Suspect]
     Active Substance: ADALIMUMAB
     Indication: Foetal exposure during pregnancy
     Dosage: MATERNAL EXPOSURE DURING PREGNANCY:1 MG
     Route: 064
  9. HUMIRA [Suspect]
     Active Substance: ADALIMUMAB
     Dosage: MATERNAL EXPOSURE DURING PREGNANCY:400 MG
     Route: 064
  10. HUMIRA [Suspect]
     Active Substance: ADALIMUMAB
     Dosage: MATERNAL EXPOSURE DURING PREGNANCY:4 MG
     Route: 064
  11. CHLORAPREP [Suspect]
     Active Substance: CHLORHEXIDINE GLUCONATE\ISOPROPYL ALCOHOL
     Indication: Foetal exposure during pregnancy
     Dosage: MATERNAL EXPOSURE DURING PREGNANCY:12 MG, QD
     Route: 064
  12. CHLORAPREP [Suspect]
     Active Substance: CHLORHEXIDINE GLUCONATE\ISOPROPYL ALCOHOL
     Dosage: MATERNAL EXPOSURE DURING PREGNANCY:1 G
     Route: 064
  13. CHLORHEXIDINE [Suspect]
     Active Substance: CHLORHEXIDINE
     Indication: Foetal exposure during pregnancy
     Dosage: MATERNAL EXPOSURE DURING PREGNANCY:UNK
     Route: 064
  14. CHLORHEXIDINE [Suspect]
     Active Substance: CHLORHEXIDINE
     Dosage: MATERNAL EXPOSURE DURING PREGNANCY:120 MG, QD
     Route: 064
  15. CHLORHEXIDINE [Suspect]
     Active Substance: CHLORHEXIDINE
     Dosage: MATERNAL EXPOSURE DURING PREGNANCY:1 G, QD
     Route: 064
  16. CHLORHEXIDINE [Suspect]
     Active Substance: CHLORHEXIDINE
     Dosage: MATERNAL EXPOSURE DURING PREGNANCY:120 MG, QW
     Route: 064
  17. ORENCIA [Suspect]
     Active Substance: ABATACEPT
     Indication: Foetal exposure during pregnancy
     Dosage: MATERNAL EXPOSURE DURING PREGNANCY:17 MG
     Route: 064
  18. ORENCIA [Suspect]
     Active Substance: ABATACEPT
     Dosage: MATERNAL EXPOSURE DURING PREGNANCY:125 MG, QW
     Route: 064
  19. ORENCIA [Suspect]
     Active Substance: ABATACEPT
     Dosage: MATERNAL EXPOSURE DURING PREGNANCY:125 MG, QW
     Route: 064
  20. ORENCIA [Suspect]
     Active Substance: ABATACEPT
     Dosage: MATERNAL EXPOSURE DURING PREGNANCY:UNK
     Route: 064
  21. ALENDRONIC ACID [Suspect]
     Active Substance: ALENDRONIC ACID
     Indication: Foetal exposure during pregnancy
     Dosage: MATERNAL EXPOSURE DURING PREGNANCY:UNK
     Route: 064
  22. ALENDRONIC ACID [Suspect]
     Active Substance: ALENDRONIC ACID
     Dosage: MATERNAL EXPOSURE DURING PREGNANCY:UNK
     Route: 064
  23. ALENDRONIC ACID [Suspect]
     Active Substance: ALENDRONIC ACID
     Dosage: MATERNAL EXPOSURE DURING PREGNANCY:UNK
     Route: 064
  24. ALENDRONIC ACID [Suspect]
     Active Substance: ALENDRONIC ACID
     Dosage: MATERNAL EXPOSURE DURING PREGNANCY:40 MG
     Route: 064
  25. ALENDRONIC ACID [Suspect]
     Active Substance: ALENDRONIC ACID
     Dosage: MATERNAL EXPOSURE DURING PREGNANCY:2000 MG, QD
     Route: 064
  26. IMURAN [Suspect]
     Active Substance: AZATHIOPRINE
     Indication: Foetal exposure during pregnancy
     Dosage: MATERNAL EXPOSURE DURING PREGNANCY:UNK
     Route: 064
  27. IMURAN [Suspect]
     Active Substance: AZATHIOPRINE
     Dosage: MATERNAL EXPOSURE DURING PREGNANCY:UNK
     Route: 064
  28. PREGABALIN [Suspect]
     Active Substance: PREGABALIN
     Indication: Foetal exposure during pregnancy
     Dosage: MATERNAL EXPOSURE DURING PREGNANCY:UNK
     Route: 064
  29. PREGABALIN [Suspect]
     Active Substance: PREGABALIN
     Dosage: MATERNAL EXPOSURE DURING PREGNANCY:UNK
     Route: 064
  30. PREGABALIN [Suspect]
     Active Substance: PREGABALIN
     Dosage: MATERNAL EXPOSURE DURING PREGNANCY:UNK
     Route: 064
  31. PREGABALIN [Suspect]
     Active Substance: PREGABALIN
     Dosage: MATERNAL EXPOSURE DURING PREGNANCY:UNK
     Route: 064
  32. STELARA [Suspect]
     Active Substance: USTEKINUMAB
     Indication: Foetal exposure during pregnancy
     Dosage: MATERNAL EXPOSURE DURING PREGNANCY:UNK
     Route: 064
  33. STELARA [Suspect]
     Active Substance: USTEKINUMAB
     Dosage: MATERNAL EXPOSURE DURING PREGNANCY:UNK
     Route: 064
  34. LISINOPRIL [Suspect]
     Active Substance: LISINOPRIL
     Indication: Foetal exposure during pregnancy
     Dosage: MATERNAL EXPOSURE DURING PREGNANCY:UNK
     Route: 064
  35. LISINOPRIL [Suspect]
     Active Substance: LISINOPRIL
     Dosage: MATERNAL EXPOSURE DURING PREGNANCY:UNK
     Route: 064
  36. SIMPONI [Suspect]
     Active Substance: GOLIMUMAB
     Indication: Foetal exposure during pregnancy
     Dosage: MATERNAL EXPOSURE DURING PREGNANCY:UNK
     Route: 064
  37. SIMPONI [Suspect]
     Active Substance: GOLIMUMAB
     Dosage: MATERNAL EXPOSURE DURING PREGNANCY:UNK
     Route: 064
  38. CAFFEINE CITRATE [Suspect]
     Active Substance: CAFFEINE CITRATE
     Indication: Foetal exposure during pregnancy
     Dosage: MATERNAL EXPOSURE DURING PREGNANCY:UNK
     Route: 064
  39. CAFFEINE CITRATE [Suspect]
     Active Substance: CAFFEINE CITRATE
     Dosage: MATERNAL EXPOSURE DURING PREGNANCY:UNK
     Route: 064
  40. LORAZEPAM [Suspect]
     Active Substance: LORAZEPAM
     Indication: Foetal exposure during pregnancy
     Dosage: MATERNAL EXPOSURE DURING PREGNANCY:1 MG
     Route: 064
  41. MORPHINE HYDROCHLORIDE [Suspect]
     Active Substance: MORPHINE HYDROCHLORIDE
     Indication: Foetal exposure during pregnancy
     Dosage: MATERNAL EXPOSURE DURING PREGNANCY:UNK
     Route: 064
  42. MORPHINE HYDROCHLORIDE [Suspect]
     Active Substance: MORPHINE HYDROCHLORIDE
     Dosage: MATERNAL EXPOSURE DURING PREGNANCY:UNK
     Route: 064
  43. PERCOCET [Suspect]
     Active Substance: ACETAMINOPHEN\OXYCODONE HYDROCHLORIDE
     Indication: Foetal exposure during pregnancy
     Dosage: MATERNAL EXPOSURE DURING PREGNANCY:25 MG, QD
     Route: 064
  44. FOSAPREPITANT [Suspect]
     Active Substance: FOSAPREPITANT
     Indication: Foetal exposure during pregnancy
     Dosage: MATERNAL EXPOSURE DURING PREGNANCY:2912 MG
     Route: 064
  45. ACTEMRA [Suspect]
     Active Substance: TOCILIZUMAB
     Indication: Foetal exposure during pregnancy
     Dosage: MATERNAL EXPOSURE DURING PREGNANCY:728 MG, QD
     Route: 064
  46. ACTEMRA [Suspect]
     Active Substance: TOCILIZUMAB
     Dosage: MATERNAL EXPOSURE DURING PREGNANCY:752 MG
     Route: 064
  47. ACTEMRA [Suspect]
     Active Substance: TOCILIZUMAB
     Dosage: MATERNAL EXPOSURE DURING PREGNANCY:752 MG, QD
     Route: 064
  48. ACTEMRA [Suspect]
     Active Substance: TOCILIZUMAB
     Dosage: MATERNAL EXPOSURE DURING PREGNANCY:UNK
     Route: 064
  49. ACTEMRA [Suspect]
     Active Substance: TOCILIZUMAB
     Dosage: MATERNAL EXPOSURE DURING PREGNANCY:UNK
     Route: 064
  50. ACTEMRA [Suspect]
     Active Substance: TOCILIZUMAB
     Dosage: MATERNAL EXPOSURE DURING PREGNANCY:2912 MG, QD
     Route: 064
  51. ACTEMRA [Suspect]
     Active Substance: TOCILIZUMAB
     Dosage: MATERNAL EXPOSURE DURING PREGNANCY:20 MG, QD
     Route: 064
  52. ACTEMRA [Suspect]
     Active Substance: TOCILIZUMAB
     Dosage: MATERNAL EXPOSURE DURING PREGNANCY:3011.2 MG
     Route: 064
  53. ACTEMRA [Suspect]
     Active Substance: TOCILIZUMAB
     Dosage: MATERNAL EXPOSURE DURING PREGNANCY:UNK
     Route: 064
  54. ACTEMRA [Suspect]
     Active Substance: TOCILIZUMAB
     Dosage: MATERNAL EXPOSURE DURING PREGNANCY:UNK
     Route: 064
  55. ERELZI [Suspect]
     Active Substance: ETANERCEPT-SZZS
     Indication: Foetal exposure during pregnancy
     Dosage: MATERNAL EXPOSURE DURING PREGNANCY:50 MG, QD
     Route: 064
  56. ASACOL [Suspect]
     Active Substance: MESALAMINE
     Indication: Foetal exposure during pregnancy
     Dosage: MATERNAL EXPOSURE DURING PREGNANCY:UNK
     Route: 064
  57. ASACOL [Suspect]
     Active Substance: MESALAMINE
     Dosage: MATERNAL EXPOSURE DURING PREGNANCY:UNK
     Route: 064
  58. CALCIUM CARBONATE [Suspect]
     Active Substance: CALCIUM CARBONATE
     Indication: Foetal exposure during pregnancy
     Dosage: MATERNAL EXPOSURE DURING PREGNANCY:UNK
     Route: 064
  59. PSEUDOEPHEDRINE HYDROCHLORIDE [Suspect]
     Active Substance: PSEUDOEPHEDRINE HYDROCHLORIDE
     Indication: Foetal exposure during pregnancy
     Dosage: MATERNAL EXPOSURE DURING PREGNANCY:3011.2 MG
     Route: 064
  60. PSEUDOEPHEDRINE HYDROCHLORIDE [Suspect]
     Active Substance: PSEUDOEPHEDRINE HYDROCHLORIDE
     Dosage: MATERNAL EXPOSURE DURING PREGNANCY:1 MG
     Route: 064
  61. PSEUDOEPHEDRINE HYDROCHLORIDE [Suspect]
     Active Substance: PSEUDOEPHEDRINE HYDROCHLORIDE
     Dosage: MATERNAL EXPOSURE DURING PREGNANCY:25 MG
     Route: 064
  62. PSEUDOEPHEDRINE HYDROCHLORIDE [Suspect]
     Active Substance: PSEUDOEPHEDRINE HYDROCHLORIDE
     Dosage: 1MATERNAL EXPOSURE DURING PREGNANCY:0 MG
     Route: 064
  63. MESALAMINE [Suspect]
     Active Substance: MESALAMINE
     Indication: Foetal exposure during pregnancy
     Dosage: MATERNAL EXPOSURE DURING PREGNANCY:UNK
     Route: 064
  64. MESALAMINE [Suspect]
     Active Substance: MESALAMINE
     Dosage: MATERNAL EXPOSURE DURING PREGNANCY:UNK
     Route: 064
  65. FOLIC ACID [Suspect]
     Active Substance: FOLIC ACID
     Indication: Foetal exposure during pregnancy
     Dosage: MATERNAL EXPOSURE DURING PREGNANCY:5 MG
     Route: 064
  66. FOLIC ACID [Suspect]
     Active Substance: FOLIC ACID
     Dosage: MATERNAL EXPOSURE DURING PREGNANCY:50 MG
     Route: 064
  67. FOLIC ACID [Suspect]
     Active Substance: FOLIC ACID
     Dosage: MATERNAL EXPOSURE DURING PREGNANCY:0.5 MG
     Route: 064
  68. FOLIC ACID [Suspect]
     Active Substance: FOLIC ACID
     Dosage: MATERNAL EXPOSURE DURING PREGNANCY:25 MG
     Route: 064
  69. FOLIC ACID [Suspect]
     Active Substance: FOLIC ACID
     Dosage: MATERNAL EXPOSURE DURING PREGNANCY:500 G
     Route: 064
  70. FOLIC ACID [Suspect]
     Active Substance: FOLIC ACID
     Dosage: MATERNAL EXPOSURE DURING PREGNANCY:1 MG
     Route: 064
  71. FOLIC ACID [Suspect]
     Active Substance: FOLIC ACID
     Dosage: MATERNAL EXPOSURE DURING PREGNANCY:15 MG
     Route: 064
  72. DESOXIMETASONE [Suspect]
     Active Substance: DESOXIMETASONE
     Indication: Foetal exposure during pregnancy
     Dosage: MATERNAL EXPOSURE DURING PREGNANCY:5 MG
     Route: 064
  73. DESOXIMETASONE [Suspect]
     Active Substance: DESOXIMETASONE
     Dosage: MATERNAL EXPOSURE DURING PREGNANCY:25 MG
     Route: 064
  74. DESOXIMETASONE [Suspect]
     Active Substance: DESOXIMETASONE
     Dosage: MATERNAL EXPOSURE DURING PREGNANCY:728 MG
     Route: 064
  75. DESOXIMETASONE [Suspect]
     Active Substance: DESOXIMETASONE
     Dosage: MATERNAL EXPOSURE DURING PREGNANCY:UNK
     Route: 064
  76. DESOXIMETASONE [Suspect]
     Active Substance: DESOXIMETASONE
     Dosage: MATERNAL EXPOSURE DURING PREGNANCY:UNK
     Route: 064
  77. PREDNISONE [Suspect]
     Active Substance: PREDNISONE
     Indication: Foetal exposure during pregnancy
     Dosage: MATERNAL EXPOSURE DURING PREGNANCY:1 MG
     Route: 064
  78. PREDNISONE [Suspect]
     Active Substance: PREDNISONE
     Dosage: MATERNAL EXPOSURE DURING PREGNANCY:40 MG
     Route: 064
  79. PREDNISONE [Suspect]
     Active Substance: PREDNISONE
     Dosage: MATERNAL EXPOSURE DURING PREGNANCY:5 MG
     Route: 064
  80. PREDNISONE [Suspect]
     Active Substance: PREDNISONE
     Dosage: MATERNAL EXPOSURE DURING PREGNANCY:25 MG
     Route: 064
  81. CIMZIA [Suspect]
     Active Substance: CERTOLIZUMAB PEGOL
     Indication: Foetal exposure during pregnancy
     Dosage: MATERNAL EXPOSURE DURING PREGNANCY:400 MG
     Route: 064
  82. CIMZIA [Suspect]
     Active Substance: CERTOLIZUMAB PEGOL
     Dosage: MATERNAL EXPOSURE DURING PREGNANCY:UNK
     Route: 064
  83. CIMZIA [Suspect]
     Active Substance: CERTOLIZUMAB PEGOL
     Dosage: MATERNAL EXPOSURE DURING PREGNANCY:UNK
     Route: 064
  84. RAMIPRIL [Suspect]
     Active Substance: RAMIPRIL
     Indication: Foetal exposure during pregnancy
     Dosage: MATERNAL EXPOSURE DURING PREGNANCY:UNK
     Route: 064
  85. RAMIPRIL [Suspect]
     Active Substance: RAMIPRIL
     Dosage: MATERNAL EXPOSURE DURING PREGNANCY:UNK
     Route: 064
  86. ERYTHROMYCIN [Suspect]
     Active Substance: ERYTHROMYCIN
     Indication: Foetal exposure during pregnancy
     Dosage: MATERNAL EXPOSURE DURING PREGNANCY:UNK
     Route: 064
  87. ERYTHROMYCIN [Suspect]
     Active Substance: ERYTHROMYCIN
     Dosage: MATERNAL EXPOSURE DURING PREGNANCY:UNK
     Route: 064
  88. ATIVAN [Suspect]
     Active Substance: LORAZEPAM
     Indication: Foetal exposure during pregnancy
     Dosage: MATERNAL EXPOSURE DURING PREGNANCY:UNK
     Route: 064
  89. ATIVAN [Suspect]
     Active Substance: LORAZEPAM
     Dosage: MATERNAL EXPOSURE DURING PREGNANCY:UNK
     Route: 064
  90. FOSAMAX [Suspect]
     Active Substance: ALENDRONATE SODIUM
     Indication: Foetal exposure during pregnancy
     Dosage: MATERNAL EXPOSURE DURING PREGNANCY:17.857 MG
     Route: 064
  91. FOSAMAX [Suspect]
     Active Substance: ALENDRONATE SODIUM
     Dosage: MATERNAL EXPOSURE DURING PREGNANCY:1 MG
     Route: 064
  92. FOSAMAX [Suspect]
     Active Substance: ALENDRONATE SODIUM
     Dosage: MATERNAL EXPOSURE DURING PREGNANCY:UNK
     Route: 064
  93. FOSAMAX [Suspect]
     Active Substance: ALENDRONATE SODIUM
     Dosage: MATERNAL EXPOSURE DURING PREGNANCY:UNK
     Route: 064
  94. ADALIMUMAB [Suspect]
     Active Substance: ADALIMUMAB
     Indication: Foetal exposure during pregnancy
     Dosage: MATERNAL EXPOSURE DURING PREGNANCY:20 MG
     Route: 064
  95. ADALIMUMAB [Suspect]
     Active Substance: ADALIMUMAB
     Dosage: MATERNAL EXPOSURE DURING PREGNANCY:UNK
     Route: 064
  96. ADALIMUMAB [Suspect]
     Active Substance: ADALIMUMAB
     Dosage: MATERNAL EXPOSURE DURING PREGNANCY:UNK
     Route: 064
  97. ADALIMUMAB [Suspect]
     Active Substance: ADALIMUMAB
     Dosage: MATERNAL EXPOSURE DURING PREGNANCY:40 MG
     Route: 064
  98. CETIRIZINE HYDROCHLORIDE [Suspect]
     Active Substance: CETIRIZINE HYDROCHLORIDE
     Indication: Foetal exposure during pregnancy
     Dosage: MATERNAL EXPOSURE DURING PREGNANCY:UNK
     Route: 064
  99. CETIRIZINE HYDROCHLORIDE [Suspect]
     Active Substance: CETIRIZINE HYDROCHLORIDE
     Dosage: MATERNAL EXPOSURE DURING PREGNANCY:UNK
     Route: 064
  100. CETIRIZINE HYDROCHLORIDE [Suspect]
     Active Substance: CETIRIZINE HYDROCHLORIDE
     Dosage: MATERNAL EXPOSURE DURING PREGNANCY:26 MG, QD
     Route: 064
  101. CETIRIZINE HYDROCHLORIDE [Suspect]
     Active Substance: CETIRIZINE HYDROCHLORIDE
     Dosage: MATERNAL EXPOSURE DURING PREGNANCY:10 MG, QD
     Route: 064
  102. ALBUTEROL [Suspect]
     Active Substance: ALBUTEROL
     Indication: Foetal exposure during pregnancy
     Dosage: MATERNAL EXPOSURE DURING PREGNANCY:UNK
     Route: 064
  103. ALBUTEROL [Suspect]
     Active Substance: ALBUTEROL
     Dosage: MATERNAL EXPOSURE DURING PREGNANCY:UNK
     Route: 064
  104. COSENTYX [Suspect]
     Active Substance: SECUKINUMAB
     Indication: Foetal exposure during pregnancy
     Dosage: MATERNAL EXPOSURE DURING PREGNANCY:UNK
     Route: 064
  105. COSENTYX [Suspect]
     Active Substance: SECUKINUMAB
     Dosage: MATERNAL EXPOSURE DURING PREGNANCY:UNK
     Route: 064
  106. ERGOCALCIFEROL [Suspect]
     Active Substance: ERGOCALCIFEROL
     Indication: Foetal exposure during pregnancy
     Dosage: MATERNAL EXPOSURE DURING PREGNANCY:500 MG
     Route: 064
  107. MELOXICAM [Suspect]
     Active Substance: MELOXICAM
     Indication: Foetal exposure during pregnancy
     Dosage: MATERNAL EXPOSURE DURING PREGNANCY:UNK
     Route: 064
  108. MELOXICAM [Suspect]
     Active Substance: MELOXICAM
     Dosage: MATERNAL EXPOSURE DURING PREGNANCY:UNK
     Route: 064
  109. CODEINE PHOSPHATE [Suspect]
     Active Substance: CODEINE PHOSPHATE
     Indication: Foetal exposure during pregnancy
     Dosage: MATERNAL EXPOSURE DURING PREGNANCY:UNK
     Route: 064
  110. CODEINE PHOSPHATE [Suspect]
     Active Substance: CODEINE PHOSPHATE
     Dosage: MATERNAL EXPOSURE DURING PREGNANCY:UNK
     Route: 064
  111. INFLIXIMAB [Suspect]
     Active Substance: INFLIXIMAB
     Indication: Foetal exposure during pregnancy
     Dosage: MATERNAL EXPOSURE DURING PREGNANCY:UNK
     Route: 064
  112. INFLIXIMAB [Suspect]
     Active Substance: INFLIXIMAB
     Dosage: MATERNAL EXPOSURE DURING PREGNANCY:UNK
     Route: 064
  113. VITAMIN C [Suspect]
     Active Substance: ASCORBIC ACID
     Indication: Foetal exposure during pregnancy
     Dosage: MATERNAL EXPOSURE DURING PREGNANCY:1000 MG
     Route: 064
  114. CALTRATE [Suspect]
     Active Substance: CALCIUM CARBONATE
     Indication: Foetal exposure during pregnancy
     Dosage: MATERNAL EXPOSURE DURING PREGNANCY:UNK
     Route: 064
  115. LEFLUNOMIDE [Suspect]
     Active Substance: LEFLUNOMIDE
     Indication: Foetal exposure during pregnancy
     Dosage: MATERNAL EXPOSURE DURING PREGNANCY:20 MG
     Route: 064
  116. CAFFEINE [Suspect]
     Active Substance: CAFFEINE
     Indication: Foetal exposure during pregnancy
     Dosage: MATERNAL EXPOSURE DURING PREGNANCY:UNK
     Route: 064
  117. CAFFEINE [Suspect]
     Active Substance: CAFFEINE
     Dosage: MATERNAL EXPOSURE DURING PREGNANCY:UNK
     Route: 064
  118. DOXYCYCLINE HYCLATE [Suspect]
     Active Substance: DOXYCYCLINE HYCLATE
     Indication: Foetal exposure during pregnancy
     Dosage: MATERNAL EXPOSURE DURING PREGNANCY:UNK
     Route: 064
  119. DOXYCYCLINE HYCLATE [Suspect]
     Active Substance: DOXYCYCLINE HYCLATE
     Dosage: MATERNAL EXPOSURE DURING PREGNANCY:UNK
     Route: 064
  120. DOXYCYCLINE HYCLATE [Suspect]
     Active Substance: DOXYCYCLINE HYCLATE
     Dosage: MATERNAL EXPOSURE DURING PREGNANCY:UNK
     Route: 064
  121. DOXYCYCLINE HYCLATE [Suspect]
     Active Substance: DOXYCYCLINE HYCLATE
     Dosage: MATERNAL EXPOSURE DURING PREGNANCY:UNK
     Route: 064
  122. PREVACID [Suspect]
     Active Substance: LANSOPRAZOLE
     Indication: Foetal exposure during pregnancy
     Dosage: MATERNAL EXPOSURE DURING PREGNANCY:UNK
     Route: 064
  123. PREVACID [Suspect]
     Active Substance: LANSOPRAZOLE
     Dosage: MATERNAL EXPOSURE DURING PREGNANCY:UNK
     Route: 064
  124. ZESTRIL [Suspect]
     Active Substance: LISINOPRIL
     Indication: Foetal exposure during pregnancy
     Dosage: MATERNAL EXPOSURE DURING PREGNANCY:500 MG
     Route: 064
  125. OTEZLA [Suspect]
     Active Substance: APREMILAST
     Indication: Foetal exposure during pregnancy
     Dosage: MATERNAL EXPOSURE DURING PREGNANCY:500 MG
     Route: 064
  126. OTEZLA [Suspect]
     Active Substance: APREMILAST
     Dosage: MATERNAL EXPOSURE DURING PREGNANCY:3 MG
     Route: 064
  127. OTEZLA [Suspect]
     Active Substance: APREMILAST
     Dosage: MATERNAL EXPOSURE DURING PREGNANCY:3011.2 MG
     Route: 064
  128. SULFASALAZINE [Suspect]
     Active Substance: SULFASALAZINE
     Indication: Foetal exposure during pregnancy
     Dosage: MATERNAL EXPOSURE DURING PREGNANCY:500 MG
     Route: 064
  129. SULFASALAZINE [Suspect]
     Active Substance: SULFASALAZINE
     Dosage: MATERNAL EXPOSURE DURING PREGNANCY:1000 G
     Route: 064
  130. ARAVA [Suspect]
     Active Substance: LEFLUNOMIDE
     Indication: Foetal exposure during pregnancy
     Dosage: MATERNAL EXPOSURE DURING PREGNANCY:20 MG
     Route: 064
  131. ARAVA [Suspect]
     Active Substance: LEFLUNOMIDE
     Dosage: MATERNAL EXPOSURE DURING PREGNANCY:10 MG
     Route: 064
  132. ARAVA [Suspect]
     Active Substance: LEFLUNOMIDE
     Dosage: MATERNAL EXPOSURE DURING PREGNANCY:UNK
     Route: 064
  133. ARAVA [Suspect]
     Active Substance: LEFLUNOMIDE
     Dosage: MATERNAL EXPOSURE DURING PREGNANCY:UNK
     Route: 064
  134. ARAVA [Suspect]
     Active Substance: LEFLUNOMIDE
     Dosage: MATERNAL EXPOSURE DURING PREGNANCY:10 MG, QD
     Route: 064
  135. ARAVA [Suspect]
     Active Substance: LEFLUNOMIDE
     Dosage: MATERNAL EXPOSURE DURING PREGNANCY:2000 MG, QD
     Route: 064
  136. ARAVA [Suspect]
     Active Substance: LEFLUNOMIDE
     Dosage: MATERNAL EXPOSURE DURING PREGNANCY:1 DOSAGE FORM
     Route: 064
  137. ARAVA [Suspect]
     Active Substance: LEFLUNOMIDE
     Dosage: MATERNAL EXPOSURE DURING PREGNANCY:UNK
     Route: 064
  138. ARAVA [Suspect]
     Active Substance: LEFLUNOMIDE
     Dosage: MATERNAL EXPOSURE DURING PREGNANCY:UNK
     Route: 064
  139. CLIOQUINOL\FLUMETHASONE [Suspect]
     Active Substance: CLIOQUINOL\FLUMETHASONE
     Indication: Foetal exposure during pregnancy
     Dosage: MATERNAL EXPOSURE DURING PREGNANCY:UNK
     Route: 064
  140. CLIOQUINOL\FLUMETHASONE [Suspect]
     Active Substance: CLIOQUINOL\FLUMETHASONE
     Dosage: MATERNAL EXPOSURE DURING PREGNANCY:UNK
     Route: 064
  141. SULFASALAZINE [Suspect]
     Active Substance: SULFASALAZINE
     Indication: Foetal exposure during pregnancy
     Dosage: MATERNAL EXPOSURE DURING PREGNANCY:2 MG
     Route: 064
  142. SULFASALAZINE [Suspect]
     Active Substance: SULFASALAZINE
     Dosage: MATERNAL EXPOSURE DURING PREGNANCY:100 MG
     Route: 064
  143. SULFASALAZINE [Suspect]
     Active Substance: SULFASALAZINE
     Dosage: MATERNAL EXPOSURE DURING PREGNANCY:300 MG
     Route: 064
  144. SULFASALAZINE [Suspect]
     Active Substance: SULFASALAZINE
     Dosage: MATERNAL EXPOSURE DURING PREGNANCY:2000 MG
     Route: 064
  145. LANSOPRAZOLE [Suspect]
     Active Substance: LANSOPRAZOLE
     Indication: Foetal exposure during pregnancy
     Dosage: MATERNAL EXPOSURE DURING PREGNANCY:400 MG, OTHER
     Route: 064
  146. DICLOFENAC SODIUM [Suspect]
     Active Substance: DICLOFENAC SODIUM
     Indication: Foetal exposure during pregnancy
     Dosage: MATERNAL EXPOSURE DURING PREGNANCY:225 MG
     Route: 064
  147. DICLOFENAC SODIUM [Suspect]
     Active Substance: DICLOFENAC SODIUM
     Dosage: MATERNAL EXPOSURE DURING PREGNANCY:500 MG
     Route: 064
  148. DICLOFENAC SODIUM [Suspect]
     Active Substance: DICLOFENAC SODIUM
     Dosage: MATERNAL EXPOSURE DURING PREGNANCY:UNK
     Route: 064
  149. DICLOFENAC SODIUM [Suspect]
     Active Substance: DICLOFENAC SODIUM
     Dosage: MATERNAL EXPOSURE DURING PREGNANCY:UNK
     Route: 064
  150. DICLOFENAC SODIUM [Suspect]
     Active Substance: DICLOFENAC SODIUM
     Dosage: MATERNAL EXPOSURE DURING PREGNANCY:50 MG
     Route: 064
  151. DICLOFENAC SODIUM [Suspect]
     Active Substance: DICLOFENAC SODIUM
     Dosage: MATERNAL EXPOSURE DURING PREGNANCY:225 MG
     Route: 064
  152. ENBREL [Suspect]
     Active Substance: ETANERCEPT
     Indication: Foetal exposure during pregnancy
     Dosage: MATERNAL EXPOSURE DURING PREGNANCY:50 MG, QW
     Route: 064
  153. ENBREL [Suspect]
     Active Substance: ETANERCEPT
     Dosage: MATERNAL EXPOSURE DURING PREGNANCY:20 MG, QW
     Route: 064
  154. ENBREL [Suspect]
     Active Substance: ETANERCEPT
     Dosage: MATERNAL EXPOSURE DURING PREGNANCY:50 MG
     Route: 064
  155. ENBREL [Suspect]
     Active Substance: ETANERCEPT
     Dosage: MATERNAL EXPOSURE DURING PREGNANCY:1 DOSAGE FORM
     Route: 064
  156. ENBREL [Suspect]
     Active Substance: ETANERCEPT
     Dosage: MATERNAL EXPOSURE DURING PREGNANCY:90 MG
     Route: 064
  157. ENBREL [Suspect]
     Active Substance: ETANERCEPT
     Dosage: MATERNAL EXPOSURE DURING PREGNANCY:200 MG
     Route: 064
  158. MAGNESIUM [Suspect]
     Active Substance: MAGNESIUM
     Indication: Foetal exposure during pregnancy
     Dosage: MATERNAL EXPOSURE DURING PREGNANCY:10 MG
     Route: 064
  159. MAGNESIUM [Suspect]
     Active Substance: MAGNESIUM
     Indication: Foetal exposure during pregnancy
     Dosage: MATERNAL EXPOSURE DURING PREGNANCY:10 MG
     Route: 064
  160. DIPHENHYDRAMINE HYDROCHLORIDE [Suspect]
     Active Substance: DIPHENHYDRAMINE HYDROCHLORIDE
     Indication: Foetal exposure during pregnancy
     Dosage: MATERNAL EXPOSURE DURING PREGNANCY:UNK
     Route: 064
  161. DIPHENHYDRAMINE HYDROCHLORIDE [Suspect]
     Active Substance: DIPHENHYDRAMINE HYDROCHLORIDE
     Dosage: MATERNAL EXPOSURE DURING PREGNANCY:UNK
     Route: 064
  162. CHOLECALCIFEROL [Suspect]
     Active Substance: CHOLECALCIFEROL
     Indication: Foetal exposure during pregnancy
     Dosage: MATERNAL EXPOSURE DURING PREGNANCY:752.8 MG
     Route: 064
  163. CHOLECALCIFEROL [Suspect]
     Active Substance: CHOLECALCIFEROL
     Dosage: MATERNAL EXPOSURE DURING PREGNANCY:UNK
     Route: 064
  164. CHOLECALCIFEROL [Suspect]
     Active Substance: CHOLECALCIFEROL
     Dosage: MATERNAL EXPOSURE DURING PREGNANCY:UNK
     Route: 064
  165. PREDNISONE [Suspect]
     Active Substance: PREDNISONE
     Indication: Foetal exposure during pregnancy
     Dosage: MATERNAL EXPOSURE DURING PREGNANCY:40 MG
     Route: 064
  166. PREDNISONE [Suspect]
     Active Substance: PREDNISONE
     Dosage: MATERNAL EXPOSURE DURING PREGNANCY:5 MG
     Route: 064
  167. METHOTREXATE [Suspect]
     Active Substance: METHOTREXATE
     Indication: Foetal exposure during pregnancy
     Dosage: MATERNAL EXPOSURE DURING PREGNANCY:20 MG, QW
     Route: 064
  168. METHOTREXATE [Suspect]
     Active Substance: METHOTREXATE
     Dosage: MATERNAL EXPOSURE DURING PREGNANCY:25 MG, QD
     Route: 064
  169. METHOTREXATE [Suspect]
     Active Substance: METHOTREXATE
     Dosage: MATERNAL EXPOSURE DURING PREGNANCY:225 MG
     Route: 064
  170. METHOTREXATE [Suspect]
     Active Substance: METHOTREXATE
     Dosage: MATERNAL EXPOSURE DURING PREGNANCY:UNK
     Route: 064
  171. METHOTREXATE [Suspect]
     Active Substance: METHOTREXATE
     Dosage: MATERNAL EXPOSURE DURING PREGNANCY:UNK
     Route: 064
  172. METHOTREXATE [Suspect]
     Active Substance: METHOTREXATE
     Dosage: MATERNAL EXPOSURE DURING PREGNANCY:15 MG, QD
     Route: 064
  173. METHOTREXATE [Suspect]
     Active Substance: METHOTREXATE
     Dosage: MATERNAL EXPOSURE DURING PREGNANCY:1 G
     Route: 064
  174. METHOTREXATE [Suspect]
     Active Substance: METHOTREXATE
     Dosage: MATERNAL EXPOSURE DURING PREGNANCY:2 MG
     Route: 064
  175. CELECOXIB [Suspect]
     Active Substance: CELECOXIB
     Indication: Foetal exposure during pregnancy
     Dosage: MATERNAL EXPOSURE DURING PREGNANCY:75 MG
     Route: 064
  176. CELECOXIB [Suspect]
     Active Substance: CELECOXIB
     Dosage: MATERNAL EXPOSURE DURING PREGNANCY:7.5 MG, QD
     Route: 064
  177. CELECOXIB [Suspect]
     Active Substance: CELECOXIB
     Dosage: MATERNAL EXPOSURE DURING PREGNANCY:10 MG, QD
     Route: 064
  178. CELECOXIB [Suspect]
     Active Substance: CELECOXIB
     Dosage: MATERNAL EXPOSURE DURING PREGNANCY:2 DOSAGE FORM, QD
     Route: 064
  179. CELECOXIB [Suspect]
     Active Substance: CELECOXIB
     Dosage: MATERNAL EXPOSURE DURING PREGNANCY:20 MG, QD
     Route: 064
  180. CETIRIZINE HYDROCHLORIDE [Suspect]
     Active Substance: CETIRIZINE HYDROCHLORIDE
     Indication: Foetal exposure during pregnancy
     Dosage: MATERNAL EXPOSURE DURING PREGNANCY:25 MG
     Route: 064
  181. CETIRIZINE HYDROCHLORIDE [Suspect]
     Active Substance: CETIRIZINE HYDROCHLORIDE
     Dosage: MATERNAL EXPOSURE DURING PREGNANCY:UNK
     Route: 064
  182. CETIRIZINE HYDROCHLORIDE [Suspect]
     Active Substance: CETIRIZINE HYDROCHLORIDE
     Dosage: MATERNAL EXPOSURE DURING PREGNANCY:UNK
     Route: 064
  183. CETIRIZINE HYDROCHLORIDE [Suspect]
     Active Substance: CETIRIZINE HYDROCHLORIDE
     Dosage: MATERNAL EXPOSURE DURING PREGNANCY:10 MG
     Route: 064
  184. RITUXIMAB [Suspect]
     Active Substance: RITUXIMAB
     Indication: Foetal exposure during pregnancy
     Dosage: MATERNAL EXPOSURE DURING PREGNANCY:UNK
  185. RITUXIMAB [Suspect]
     Active Substance: RITUXIMAB
     Dosage: MATERNAL EXPOSURE DURING PREGNANCY:UNK
  186. RITUXIMAB [Suspect]
     Active Substance: RITUXIMAB
     Dosage: MATERNAL EXPOSURE DURING PREGNANCY:265.5 MG
  187. ACETAMINOPHEN [Suspect]
     Active Substance: ACETAMINOPHEN
     Indication: Foetal exposure during pregnancy
     Dosage: MATERNAL EXPOSURE DURING PREGNANCY:UNK
     Route: 064
  188. ACETAMINOPHEN [Suspect]
     Active Substance: ACETAMINOPHEN
     Dosage: MATERNAL EXPOSURE DURING PREGNANCY:UNK
     Route: 064
  189. ACETAMINOPHEN [Suspect]
     Active Substance: ACETAMINOPHEN
     Dosage: MATERNAL EXPOSURE DURING PREGNANCY:UNK
     Route: 064
  190. ACETAMINOPHEN [Suspect]
     Active Substance: ACETAMINOPHEN
     Dosage: MATERNAL EXPOSURE DURING PREGNANCY:UNK
     Route: 064
  191. ACETAMINOPHEN [Suspect]
     Active Substance: ACETAMINOPHEN
     Dosage: MATERNAL EXPOSURE DURING PREGNANCY:50 MG
     Route: 064
  192. ACETAMINOPHEN [Suspect]
     Active Substance: ACETAMINOPHEN
     Dosage: MATERNAL EXPOSURE DURING PREGNANCY:20 MG
     Route: 064
  193. ACETAMINOPHEN [Suspect]
     Active Substance: ACETAMINOPHEN
     Dosage: MATERNAL EXPOSURE DURING PREGNANCY:UNK
     Route: 064
  194. ACETAMINOPHEN [Suspect]
     Active Substance: ACETAMINOPHEN
     Dosage: MATERNAL EXPOSURE DURING PREGNANCY:UNK
     Route: 064
  195. ACETAMINOPHEN [Suspect]
     Active Substance: ACETAMINOPHEN
     Dosage: MATERNAL EXPOSURE DURING PREGNANCY:10 MG
     Route: 064
  196. ACETAMINOPHEN [Suspect]
     Active Substance: ACETAMINOPHEN
     Dosage: MATERNAL EXPOSURE DURING PREGNANCY:UNK
     Route: 064
  197. ACETAMINOPHEN [Suspect]
     Active Substance: ACETAMINOPHEN
     Dosage: MATERNAL EXPOSURE DURING PREGNANCY:UNK
     Route: 064
  198. ACETAMINOPHEN [Suspect]
     Active Substance: ACETAMINOPHEN
     Dosage: MATERNAL EXPOSURE DURING PREGNANCY:500 MG
     Route: 064
  199. NAPROXEN SODIUM [Suspect]
     Active Substance: NAPROXEN SODIUM
     Indication: Foetal exposure during pregnancy
     Dosage: MATERNAL EXPOSURE DURING PREGNANCY:500 MG
     Route: 064
  200. NAPROXEN SODIUM [Suspect]
     Active Substance: NAPROXEN SODIUM
     Dosage: MATERNAL EXPOSURE DURING PREGNANCY:0.5 MG, QD
     Route: 064
  201. PHTHALYLSULFATHIAZOLE [Suspect]
     Active Substance: PHTHALYLSULFATHIAZOLE
     Indication: Foetal exposure during pregnancy
     Dosage: MATERNAL EXPOSURE DURING PREGNANCY:UNK
     Route: 064
  202. PHTHALYLSULFATHIAZOLE [Suspect]
     Active Substance: PHTHALYLSULFATHIAZOLE
     Dosage: MATERNAL EXPOSURE DURING PREGNANCY:UNK
     Route: 064
  203. PHTHALYLSULFATHIAZOLE [Suspect]
     Active Substance: PHTHALYLSULFATHIAZOLE
     Dosage: MATERNAL EXPOSURE DURING PREGNANCY:500 MG
     Route: 064
  204. PHTHALYLSULFATHIAZOLE [Suspect]
     Active Substance: PHTHALYLSULFATHIAZOLE
     Dosage: MATERNAL EXPOSURE DURING PREGNANCY:1000 MG
     Route: 064
  205. HYALURONIDASE [Suspect]
     Active Substance: HYALURONIDASE
     Indication: Foetal exposure during pregnancy
     Dosage: MATERNAL EXPOSURE DURING PREGNANCY:UNK
     Route: 064
  206. HYALURONIDASE [Suspect]
     Active Substance: HYALURONIDASE
     Dosage: MATERNAL EXPOSURE DURING PREGNANCY:UNK
     Route: 064
  207. XELJANZ [Suspect]
     Active Substance: TOFACITINIB CITRATE
     Indication: Foetal exposure during pregnancy
     Dosage: MATERNAL EXPOSURE DURING PREGNANCY:5 MG, QW
     Route: 064
  208. XELJANZ [Suspect]
     Active Substance: TOFACITINIB CITRATE
     Dosage: MATERNAL EXPOSURE DURING PREGNANCY:10 MG, QW
     Route: 064
  209. QUETIAPINE [Suspect]
     Active Substance: QUETIAPINE
     Indication: Foetal exposure during pregnancy
     Dosage: MATERNAL EXPOSURE DURING PREGNANCY:UNK
     Route: 064
  210. QUETIAPINE [Suspect]
     Active Substance: QUETIAPINE
     Dosage: MATERNAL EXPOSURE DURING PREGNANCY:UNK
     Route: 064
  211. FLUOROMETHOLONE [Suspect]
     Active Substance: FLUOROMETHOLONE
     Indication: Foetal exposure during pregnancy
     Dosage: MATERNAL EXPOSURE DURING PREGNANCY:UNK
     Route: 064
  212. FLUOROMETHOLONE [Suspect]
     Active Substance: FLUOROMETHOLONE
     Dosage: MATERNAL EXPOSURE DURING PREGNANCY:UNK
     Route: 064
  213. ISOPROPYL ALCOHOL [Suspect]
     Active Substance: ISOPROPYL ALCOHOL
     Indication: Foetal exposure during pregnancy
     Dosage: MATERNAL EXPOSURE DURING PREGNANCY:2912 MG
     Route: 064
  214. TOFACITINIB [Suspect]
     Active Substance: TOFACITINIB
     Indication: Foetal exposure during pregnancy
     Dosage: MATERNAL EXPOSURE DURING PREGNANCY:10 MG, QD
     Route: 064
  215. GLUCOSAMINE [Suspect]
     Active Substance: GLUCOSAMINE
     Indication: Foetal exposure during pregnancy
     Dosage: MATERNAL EXPOSURE DURING PREGNANCY:UNK
     Route: 064
  216. GLUCOSAMINE [Suspect]
     Active Substance: GLUCOSAMINE
     Dosage: MATERNAL EXPOSURE DURING PREGNANCY:UNK
     Route: 064
  217. PLAQUENIL [Suspect]
     Active Substance: HYDROXYCHLOROQUINE SULFATE
     Indication: Foetal exposure during pregnancy
     Dosage: MATERNAL EXPOSURE DURING PREGNANCY:400 MG, QD
     Route: 064
  218. AMINOSALICYLATE SODIUM [Suspect]
     Active Substance: AMINOSALICYLATE SODIUM
     Indication: Product used for unknown indication

REACTIONS (2)
  - Congenital anomaly [Fatal]
  - Maternal exposure during pregnancy [Fatal]
